FAERS Safety Report 7585583-5 (Version None)
Quarter: 2011Q2

REPORT INFORMATION
  Report Type: 
  Country: None (occurrence: None)
  Receive Date: 20110628
  Receipt Date: 20110628
  Transmission Date: 20111010
  Serious: Yes (Death, Life-Threatening, Hospitalization)
  Sender: FDA-Public Use
  Company Number: None

PATIENT
  Sex: Male
  Weight: 120.4 kg

DRUGS (2)
  1. FOSPHENYTOIN [Suspect]
     Indication: CONVULSION
     Dosage: 400MG Q 12H IV BOLUS
     Route: 040
     Dates: start: 20110112, end: 20110121
  2. PHENYTOIN [Suspect]
     Indication: CONVULSION
     Dosage: 400NG BID PO
     Route: 048
     Dates: start: 20110121, end: 20110202

REACTIONS (19)
  - RENAL FAILURE ACUTE [None]
  - HAEMODIALYSIS [None]
  - TUBULOINTERSTITIAL NEPHRITIS [None]
  - SWELLING [None]
  - EOSINOPHILIA [None]
  - PULSELESS ELECTRICAL ACTIVITY [None]
  - TOXICITY TO VARIOUS AGENTS [None]
  - ASTHENIA [None]
  - RASH ERYTHEMATOUS [None]
  - RASH MACULO-PAPULAR [None]
  - RENAL TUBULAR NECROSIS [None]
  - CARDIO-RESPIRATORY ARREST [None]
  - LACTIC ACIDOSIS [None]
  - PYREXIA [None]
  - PRURITUS [None]
  - ELECTROLYTE IMBALANCE [None]
  - SKIN EXFOLIATION [None]
  - MYOCARDITIS [None]
  - TACHYCARDIA [None]
